FAERS Safety Report 4855293-3 (Version None)
Quarter: 2005Q4

REPORT INFORMATION
  Report Type: 
  Country: None (occurrence: None)
  Receive Date: 20051214
  Receipt Date: 20051123
  Transmission Date: 20060501
  Serious: Yes (Hospitalization, Other)
  Sender: FDA-Public Use
  Company Number: US200511002537

PATIENT
  Age: 42 Year
  Sex: Male

DRUGS (4)
  1. HUMULIN N [Suspect]
     Indication: DIABETES MELLITUS
  2. HUMULIN R [Suspect]
     Indication: DIABETES MELLITUS
  3. INSULIN, ANIMAL (INSULIN, ANIMAL PORK NPH) VIAL [Suspect]
     Indication: DIABETES MELLITUS
  4. ILETIN II [Suspect]
     Indication: DIABETES MELLITUS

REACTIONS (6)
  - CARDIAC OPERATION [None]
  - MOBILITY DECREASED [None]
  - NEUROPATHY [None]
  - RETINOPATHY [None]
  - SOMNOLENCE [None]
  - SPEECH DISORDER [None]
